FAERS Safety Report 26077340 (Version 1)
Quarter: 2025Q4

REPORT INFORMATION
  Report Type: Spontaneous
  Country: US (occurrence: US)
  Receive Date: 20251121
  Receipt Date: 20251121
  Transmission Date: 20260117
  Serious: No
  Sender: NOVO NORDISK
  Company Number: US-NOVOPROD-1330262

PATIENT
  Sex: Female

DRUGS (1)
  1. INSULIN DEGLUDEC [Suspect]
     Active Substance: INSULIN DEGLUDEC
     Indication: Type 2 diabetes mellitus
     Dosage: 46 IU, QD
     Route: 058
     Dates: start: 20241013

REACTIONS (5)
  - Tremor [Not Recovered/Not Resolved]
  - Product dispensing error [Unknown]
  - Wrong technique in product usage process [Unknown]
  - Incorrect dose administered by device [Recovered/Resolved]
  - Device mechanical issue [Recovered/Resolved]
